FAERS Safety Report 13134575 (Version 1)
Quarter: 2017Q1

REPORT INFORMATION
  Report Type: Spontaneous
  Country: JP (occurrence: JP)
  Receive Date: 20170120
  Receipt Date: 20170120
  Transmission Date: 20170428
  Serious: Yes (Hospitalization, Other)
  Sender: FDA-Public Use
  Company Number: JP-PFIZER INC-2017020497

PATIENT
  Age: 3 Year
  Sex: Female
  Weight: 14 kg

DRUGS (9)
  1. PRIDOL /00049602/ [Concomitant]
     Dosage: UNK
     Route: 042
  2. CEFDITOREN PIVOXIL. [Concomitant]
     Active Substance: CEFDITOREN PIVOXIL
     Dosage: UNK
     Route: 048
  3. ENTOMOL [Concomitant]
     Dosage: UNK
  4. RECOMODULIN [Concomitant]
     Active Substance: THROMBOMODULIN ALFA
     Dosage: UNK
     Route: 041
  5. LEXIN [Suspect]
     Active Substance: CEPHALEXIN
     Dosage: 70 MG, SINGLE
     Route: 048
     Dates: start: 20141127, end: 20141127
  6. SOLDEM 1 [Concomitant]
     Active Substance: DEXTROSE\SODIUM CHLORIDE\SODIUM LACTATE
     Dosage: UNK
     Route: 041
  7. CEFTRIAXONE SODIUM PFIZER [Suspect]
     Active Substance: CEFTRIAXONE SODIUM
     Dosage: 700 MG, SINGLE
     Route: 041
     Dates: start: 20141125, end: 20141125
  8. SOLDEM 3A [Concomitant]
     Active Substance: CARBOHYDRATES\POTASSIUM CHLORIDE\SODIUM CHLORIDE\SODIUM LACTATE
     Dosage: UNK
     Route: 041
  9. HORIZON [Concomitant]
     Active Substance: DIAZEPAM
     Dosage: UNK

REACTIONS (6)
  - Arrhythmia [Recovering/Resolving]
  - Diarrhoea [Recovering/Resolving]
  - Nausea [Recovering/Resolving]
  - Liver disorder [Recovering/Resolving]
  - Disseminated intravascular coagulation [Recovering/Resolving]
  - Respiratory syncytial virus infection [Recovering/Resolving]

NARRATIVE: CASE EVENT DATE: 201411
